FAERS Safety Report 5078893-7 (Version None)
Quarter: 2006Q3

REPORT INFORMATION
  Report Type: 
  Country: None (occurrence: None)
  Receive Date: 20060809
  Receipt Date: 20060809
  Transmission Date: 20061208
  Serious: Yes (Life-Threatening, Hospitalization)
  Sender: FDA-Public Use
  Company Number: None

PATIENT
  Age: 76 Year
  Sex: Female
  Weight: 53.5244 kg

DRUGS (14)
  1. WARFARIN SODIUM [Suspect]
     Dosage: 3 MG PO DAILY
     Route: 048
  2. ALTACE [Concomitant]
  3. AMIODARONE HCL [Concomitant]
  4. BISOPROLOL FUMARATE [Concomitant]
  5. CALCIUM GLUCONATE [Concomitant]
  6. CRESTOR [Concomitant]
  7. DARVOCET [Concomitant]
  8. FERROUS SULFATE TAB [Concomitant]
  9. IMDUR [Concomitant]
  10. LASIX [Concomitant]
  11. M.V.I. [Concomitant]
  12. NITRO [Concomitant]
  13. OMEPRAZOLE [Concomitant]
  14. SPIRONOLACTONE [Concomitant]

REACTIONS (6)
  - DIARRHOEA [None]
  - INTERNATIONAL NORMALISED RATIO INCREASED [None]
  - MELAENA [None]
  - NAUSEA [None]
  - VITAMIN K DECREASED [None]
  - VOMITING [None]
